FAERS Safety Report 12917570 (Version 2)
Quarter: 2016Q4

REPORT INFORMATION
  Report Type: Report from Study
  Country: US (occurrence: US)
  Receive Date: 20161107
  Receipt Date: 20161220
  Transmission Date: 20170207
  Serious: Yes (Hospitalization)
  Sender: FDA-Public Use
  Company Number: PHEH2016US028291

PATIENT
  Age: 63 Year
  Sex: Female
  Weight: 104 kg

DRUGS (1)
  1. GILENYA [Suspect]
     Active Substance: FINGOLIMOD HYDROCHLORIDE
     Indication: MULTIPLE SCLEROSIS
     Dosage: 0.5 MG, QD
     Route: 048
     Dates: start: 201505

REACTIONS (3)
  - Transient ischaemic attack [Recovered/Resolved]
  - Aphasia [Recovered/Resolved]
  - Alexia [Recovered/Resolved]

NARRATIVE: CASE EVENT DATE: 20160921
